FAERS Safety Report 5837630-6 (Version None)
Quarter: 2008Q3

REPORT INFORMATION
  Report Type: 
  Country: None (occurrence: None)
  Receive Date: 20080807
  Receipt Date: 20080729
  Transmission Date: 20090109
  Serious: Yes (Other)
  Sender: FDA-Public Use
  Company Number: PHEH2008US06744

PATIENT
  Sex: Male

DRUGS (1)
  1. ZOMETA [Suspect]
     Dosage: UNK

REACTIONS (5)
  - ERYTHEMA [None]
  - FALL [None]
  - HYPERTENSION [None]
  - INFECTION [None]
  - OEDEMA PERIPHERAL [None]
